FAERS Safety Report 8735028 (Version 2)
Quarter: 2012Q4

REPORT INFORMATION
  Report Type: 
  Country: CH (occurrence: CH)
  Receive Date: 20120821
  Receipt Date: 20120914
  Transmission Date: 20130627
  Serious: Yes (Other)
  Sender: FDA-Public Use
  Company Number: CH-PFIZER INC-2012199348

PATIENT
  Age: 58 Year
  Sex: Female
  Weight: 60 kg

DRUGS (7)
  1. SALAZOPYRIN [Suspect]
     Dosage: 500 mg, 1x/day
     Route: 048
     Dates: start: 20110511
  2. SALAZOPYRIN [Suspect]
     Dosage: 500 mg, 4x/day
     Route: 048
     Dates: end: 20110907
  3. METOJECT [Suspect]
     Indication: RHEUMATOID ARTHRITIS
     Dosage: 20 mg, as needed
     Route: 058
     Dates: start: 20110413, end: 20110507
  4. SPIRICORT [Suspect]
     Dosage: 20 mg, 1x/day
     Route: 048
     Dates: start: 20110507, end: 20110510
  5. MEPHADOLOR 500 NEO [Suspect]
     Dosage: 500 mg, as needed
     Route: 048
  6. VOLTAFLEX PLUS [Concomitant]
     Dosage: 1 DF, 1x/day
     Route: 048
     Dates: start: 2010
  7. CONDROSULF [Concomitant]
     Dosage: 1 DF, 1x/day
     Route: 048
     Dates: start: 2010

REACTIONS (4)
  - Respiratory disorder [Recovered/Resolved]
  - Alopecia [Recovered/Resolved]
  - Tooth disorder [Recovered/Resolved]
  - Weight increased [Recovered/Resolved]
